FAERS Safety Report 7124636-2 (Version None)
Quarter: 2010Q4

REPORT INFORMATION
  Report Type: 
  Country: None (occurrence: None)
  Receive Date: 20101122
  Receipt Date: 20101122
  Transmission Date: 20110411
  Serious: Yes (Disabling)
  Sender: FDA-Public Use
  Company Number: None

PATIENT
  Age: 53 Year
  Sex: Female
  Weight: 81.6475 kg

DRUGS (1)
  1. LYRICA [Suspect]
     Indication: FIBROMYALGIA
     Dosage: 300 X 2 X'S 2 PO
     Route: 048

REACTIONS (20)
  - AMNESIA [None]
  - CRYING [None]
  - DENTAL CARIES [None]
  - DYSLEXIA [None]
  - FALL [None]
  - FEELING ABNORMAL [None]
  - FEELING OF BODY TEMPERATURE CHANGE [None]
  - FORMICATION [None]
  - HAEMORRHAGE [None]
  - HYPOPHAGIA [None]
  - IMMUNE SYSTEM DISORDER [None]
  - JOINT SWELLING [None]
  - MALNUTRITION [None]
  - OEDEMA PERIPHERAL [None]
  - PAIN [None]
  - QUALITY OF LIFE DECREASED [None]
  - SPEECH DISORDER [None]
  - TOOTH FRACTURE [None]
  - TREMOR [None]
  - WEIGHT INCREASED [None]
